FAERS Safety Report 5723621-2 (Version None)
Quarter: 2008Q2

REPORT INFORMATION
  Report Type: 
  Country: None (occurrence: None)
  Receive Date: 20080430
  Receipt Date: 20080416
  Transmission Date: 20081010
  Serious: Yes (Death)
  Sender: FDA-Public Use
  Company Number: AT-PURDUE-DEU_2008_0004155

PATIENT
  Age: 16 Year
  Sex: Male

DRUGS (2)
  1. MORPHINE [Suspect]
     Indication: DRUG ABUSE
     Route: 042
  2. UNKNOWN [Concomitant]
     Route: 048

REACTIONS (3)
  - BRAIN OEDEMA [None]
  - DRUG ABUSE [None]
  - NAUSEA [None]
